FAERS Safety Report 19041522 (Version 1)
Quarter: 2021Q1

REPORT INFORMATION
  Report Type: Spontaneous
  Country: DE (occurrence: DE)
  Receive Date: 20210323
  Receipt Date: 20210323
  Transmission Date: 20210420
  Serious: Yes (Other)
  Sender: FDA-Public Use
  Company Number: DE-ESPERIONTHERAPEUTICS-2021DEU00546

PATIENT
  Age: 83 Year
  Sex: Female
  Weight: 58 kg

DRUGS (7)
  1. MAGNESIUM VERLA [MAGNESIUM CITRATE;MAGNESIUM GLUTAMATE;MAGNESIUM NICOT [Concomitant]
     Active Substance: MAGNESIUM
     Indication: PRODUCT USED FOR UNKNOWN INDICATION
     Dosage: UNK
     Route: 065
  2. ASPIRIN PROTECT [Concomitant]
     Active Substance: ASPIRIN
     Indication: PRODUCT USED FOR UNKNOWN INDICATION
     Dosage: UNK
     Route: 065
  3. NILEMDO [Suspect]
     Active Substance: BEMPEDOIC ACID
     Indication: PRODUCT USED FOR UNKNOWN INDICATION
     Dosage: 180 MILLIGRAM
     Route: 065
  4. CONCOR [Concomitant]
     Active Substance: BISOPROLOL FUMARATE
     Indication: PRODUCT USED FOR UNKNOWN INDICATION
     Dosage: UNK
     Route: 065
  5. PANTOPRAZOL [PANTOPRAZOLE] [Concomitant]
     Active Substance: PANTOPRAZOLE
     Indication: PRODUCT USED FOR UNKNOWN INDICATION
     Dosage: UNK
     Route: 065
  6. VITAMIN D3 [Concomitant]
     Active Substance: CHOLECALCIFEROL
     Indication: PRODUCT USED FOR UNKNOWN INDICATION
     Dosage: UNK
     Route: 065
  7. CONJUGATED ESTROGENS [Concomitant]
     Active Substance: ESTROGENS, CONJUGATED
     Indication: PRODUCT USED FOR UNKNOWN INDICATION
     Dosage: UNK
     Route: 065

REACTIONS (17)
  - Facial paralysis [Recovered/Resolved]
  - Dizziness [Recovered/Resolved]
  - Hyperhidrosis [Recovered/Resolved]
  - Vertigo [Recovered/Resolved]
  - Blindness [Recovered/Resolved]
  - Nausea [Recovered/Resolved]
  - Sleep disorder [Recovered/Resolved]
  - Eye pain [Not Recovered/Not Resolved]
  - Swelling of eyelid [Recovered/Resolved]
  - Chromaturia [Recovered/Resolved]
  - Eructation [Recovered/Resolved]
  - Burning sensation [Recovered/Resolved]
  - Impaired quality of life [Not Recovered/Not Resolved]
  - Weight decreased [Unknown]
  - Epistaxis [Recovered/Resolved]
  - Headache [Not Recovered/Not Resolved]
  - Ear pain [Not Recovered/Not Resolved]
